FAERS Safety Report 20012037 (Version 3)
Quarter: 2021Q4

REPORT INFORMATION
  Report Type: Spontaneous
  Country: FR (occurrence: FR)
  Receive Date: 20211028
  Receipt Date: 20211129
  Transmission Date: 20220303
  Serious: Yes (Death)
  Sender: FDA-Public Use
  Company Number: None

PATIENT
  Age: 62 Year
  Sex: Female
  Weight: 68 kg

DRUGS (17)
  1. FILGRASTIM [Suspect]
     Active Substance: FILGRASTIM
     Indication: Product used for unknown indication
     Dosage: 30 MIU/DAY
     Route: 042
     Dates: start: 20210928, end: 20211001
  2. PREGABALIN [Suspect]
     Active Substance: PREGABALIN
     Indication: Product used for unknown indication
     Dosage: 75 MG 2 TIMES/DAY
     Route: 048
     Dates: start: 20210916, end: 20211001
  3. MORPHINE SULFATE [Suspect]
     Active Substance: MORPHINE SULFATE
     Indication: Product used for unknown indication
     Dosage: 30 MG/DAY MAXIMUM
     Route: 048
     Dates: start: 20210915, end: 20211001
  4. TERBUTALINE [Suspect]
     Active Substance: TERBUTALINE
     Indication: Product used for unknown indication
     Dosage: 2L/MIN IF REQUIRED
     Route: 045
  5. URSODIOL [Suspect]
     Active Substance: URSODIOL
     Indication: Product used for unknown indication
     Dosage: 500 MG 3 TIMES A DAY
     Route: 048
     Dates: start: 20210915, end: 20211001
  6. MEROPENEM [Suspect]
     Active Substance: MEROPENEM
     Indication: Product used for unknown indication
     Dosage: 1G 3 TIMES A DAY
     Route: 042
     Dates: start: 20210918, end: 20211001
  7. LANSOPRAZOLE [Suspect]
     Active Substance: LANSOPRAZOLE
     Indication: Product used for unknown indication
     Dosage: 30 MG PER DAY
     Route: 048
     Dates: start: 20210915, end: 20211001
  8. TRANEXAMIC ACID [Suspect]
     Active Substance: TRANEXAMIC ACID
     Indication: Product used for unknown indication
     Dosage: 3 G PER DAY
     Route: 042
     Dates: start: 20210919, end: 20211001
  9. BISOPROLOL [Suspect]
     Active Substance: BISOPROLOL
     Indication: Product used for unknown indication
     Dosage: 1,25 MG/DAY
     Route: 048
     Dates: start: 20210915, end: 20211001
  10. PHLOROGLUCINOL\1,3,5-TRIMETHOXYBENZENE [Suspect]
     Active Substance: PHLOROGLUCINOL\1,3,5-TRIMETHOXYBENZENE
     Indication: Product used for unknown indication
     Dosage: 40 MG IF REQUIRED
     Route: 042
     Dates: start: 20210916, end: 20211001
  11. FLUCONAZOLE [Suspect]
     Active Substance: FLUCONAZOLE
     Indication: Product used for unknown indication
     Dosage: 400 MG 2 TIMES/DAY
     Route: 065
     Dates: start: 20210916, end: 20211001
  12. CELLCEPT [Suspect]
     Active Substance: MYCOPHENOLATE MOFETIL
     Indication: Product used for unknown indication
     Dosage: 700 MG 3 TIMES A DAY
     Route: 042
     Dates: start: 20210915, end: 20211001
  13. METOCLOPRAMIDE [Suspect]
     Active Substance: METOCLOPRAMIDE
     Indication: Product used for unknown indication
     Dosage: 10 MG IF REQUIRED
     Route: 042
     Dates: start: 20210916, end: 20211001
  14. FUROSEMIDE [Suspect]
     Active Substance: FUROSEMIDE
     Indication: Product used for unknown indication
     Dosage: 80 MG/DAY
     Route: 042
     Dates: start: 20210915, end: 20211001
  15. VALACYCLOVIR HYDROCHLORIDE [Suspect]
     Active Substance: VALACYCLOVIR HYDROCHLORIDE
     Indication: Product used for unknown indication
     Dosage: 500 MG/DAY
     Route: 048
     Dates: start: 20210916, end: 20211001
  16. CYCLOSPORINE [Suspect]
     Active Substance: CYCLOSPORINE
     Indication: Transplant
     Dosage: 250 MG/DAY
     Route: 042
     Dates: start: 20210915, end: 20211001
  17. NEFOPAM [Suspect]
     Active Substance: NEFOPAM
     Indication: Product used for unknown indication
     Dosage: 120 MG/24H
     Route: 042
     Dates: start: 20210916, end: 20211001

REACTIONS (1)
  - Brain oedema [Fatal]

NARRATIVE: CASE EVENT DATE: 20211001
